FAERS Safety Report 21380700 (Version 1)
Quarter: 2022Q3

REPORT INFORMATION
  Report Type: Spontaneous
  Country: CN (occurrence: CN)
  Receive Date: 20220927
  Receipt Date: 20220927
  Transmission Date: 20221027
  Serious: Yes (Other)
  Sender: FDA-Public Use
  Company Number: CN-PFIZER INC-PV202200070044

PATIENT
  Age: 50 Year
  Sex: Male
  Weight: 79.2 kg

DRUGS (2)
  1. METHYLPREDNISOLONE SODIUM SUCCINATE [Suspect]
     Active Substance: METHYLPREDNISOLONE SODIUM SUCCINATE
     Indication: Polymyositis
     Dosage: 40 MG, 1X/DAY
     Route: 041
     Dates: start: 20220616, end: 20220621
  2. SODIUM CHLORIDE [Concomitant]
     Active Substance: SODIUM CHLORIDE
     Indication: Vehicle solution use
     Dosage: 100 ML, 1X/DAY
     Route: 041
     Dates: start: 20220616, end: 20220621

REACTIONS (2)
  - Oedema peripheral [Recovering/Resolving]
  - Limb discomfort [Unknown]

NARRATIVE: CASE EVENT DATE: 20220617
